FAERS Safety Report 9407739 (Version 1)
Quarter: 2013Q1

REPORT INFORMATION
  Report Type: Spontaneous
  Country: IT (occurrence: None)
  Receive Date: 20130318
  Receipt Date: 20130318
  Transmission Date: 20140127
  Serious: Yes (Other)
  Sender: FDA-Public Use
  Company Number: 1536425

PATIENT
  Age: 46 Year
  Sex: Female
  Weight: 65 kg

DRUGS (2)
  1. (PACLITAXEL) [Suspect]
     Indication: PANCREATIC CARCINOMA
     Route: 042
     Dates: start: 20120629, end: 20120921
  2. (FLUOROURACIL-TEVA) [Suspect]
     Indication: PRODUCT USED FOR UNKNOWN INDICATION
     Route: 042
     Dates: start: 20120629, end: 20120921

REACTIONS (4)
  - Hypersensitivity [None]
  - Chills [None]
  - Spinal pain [None]
  - Tremor [None]
